FAERS Safety Report 25215584 (Version 1)
Quarter: 2025Q2

REPORT INFORMATION
  Report Type: Spontaneous
  Country: US (occurrence: US)
  Receive Date: 20250418
  Receipt Date: 20250418
  Transmission Date: 20250716
  Serious: No
  Sender: Phathom Pharmaceuticals
  Company Number: US-PHATHOM PHARMACEUTICALS INC.-2025PHT00204

PATIENT
  Age: 63 Year
  Sex: Female

DRUGS (7)
  1. VOQUEZNA [Suspect]
     Active Substance: VONOPRAZAN FUMARATE
     Dosage: 20 MG, 1X/DAY
     Route: 048
     Dates: start: 20250110
  2. ASPIRIN [Concomitant]
     Active Substance: ASPIRIN
     Dosage: 20 MG, 1X/DAY
     Route: 048
     Dates: start: 20250110, end: 202501
  3. LIPITOR [Concomitant]
     Active Substance: ATORVASTATIN CALCIUM
  4. ZEBETA [Concomitant]
     Active Substance: BISOPROLOL FUMARATE
  5. ESTRADIOL [Concomitant]
     Active Substance: ESTRADIOL
  6. VENLAFAXINE [Concomitant]
     Active Substance: VENLAFAXINE HYDROCHLORIDE
  7. TRULANCE [Concomitant]
     Active Substance: PLECANATIDE

REACTIONS (1)
  - Feeling abnormal [Unknown]

NARRATIVE: CASE EVENT DATE: 20250101
